FAERS Safety Report 9548455 (Version 1)
Quarter: 2013Q2

REPORT INFORMATION
  Report Type: Spontaneous
  Country: US (occurrence: None)
  Receive Date: 20130619
  Receipt Date: 20130619
  Transmission Date: 20140414
  Serious: Yes (Other)
  Sender: FDA-Public Use
  Company Number: HYCA20100001

PATIENT
  Age: 57 Year
  Sex: Female

DRUGS (3)
  1. HYCODAN [Suspect]
     Route: 048
     Dates: start: 20100930, end: 20101001
  2. LEXAPRO (ESCITALOPRAM OXALATE) (10 MILLIGRAM, TABLETS) [Suspect]
     Indication: DEPRESSION
     Route: 048
     Dates: start: 20100923, end: 20100930
  3. INDERAL (PROPRANOLOL HYDROCHLORIDE) [Concomitant]

REACTIONS (2)
  - Cough [None]
  - Dizziness [None]
